FAERS Safety Report 5902293-8 (Version None)
Quarter: 2008Q3

REPORT INFORMATION
  Report Type: 
  Country: None (occurrence: None)
  Receive Date: 20080929
  Receipt Date: 20080925
  Transmission Date: 20090109
  Serious: Yes (Other)
  Sender: FDA-Public Use
  Company Number: JP-B.I. PHARMACEUTICALS,INC./RIDGEFIELD-2008-BP-13887NB

PATIENT
  Sex: Male
  Weight: 69.5 kg

DRUGS (3)
  1. MICARDIS [Suspect]
     Indication: HYPERTENSION
     Dosage: 40MG
     Route: 048
     Dates: start: 20060511
  2. ASPIRIN [Concomitant]
     Indication: PROPHYLAXIS
     Dosage: 100MG
     Route: 048
  3. ARTIST [Concomitant]
     Indication: HYPERTENSION
     Dosage: 10MG
     Route: 048

REACTIONS (1)
  - PROSTATE CANCER [None]
